FAERS Safety Report 15806435 (Version 2)
Quarter: 2019Q1

REPORT INFORMATION
  Report Type: Report from Study
  Country: RU (occurrence: RU)
  Receive Date: 20190110
  Receipt Date: 20190210
  Transmission Date: 20190417
  Serious: Yes (Other)
  Sender: FDA-Public Use
  Company Number: RU-TEVA-2018-RU-993087

PATIENT
  Sex: Male
  Weight: 180 kg

DRUGS (2)
  1. CINQERO [Suspect]
     Active Substance: RESLIZUMAB
     Route: 065
     Dates: start: 20180803, end: 20181206
  2. SYMBICORT [Concomitant]
     Active Substance: BUDESONIDE\FORMOTEROL FUMARATE DIHYDRATE

REACTIONS (3)
  - Leukopenia [Not Recovered/Not Resolved]
  - Vasospasm [Not Recovered/Not Resolved]
  - Tinnitus [Not Recovered/Not Resolved]
